FAERS Safety Report 5470458-8 (Version None)
Quarter: 2007Q3

REPORT INFORMATION
  Report Type: 
  Country: None (occurrence: None)
  Receive Date: 20070820
  Receipt Date: 20070511
  Transmission Date: 20080115
  Serious: No
  Sender: FDA-Public Use
  Company Number: WAES 0705USA02307

PATIENT
  Sex: Male

DRUGS (2)
  1. JANUVIA [Suspect]
     Indication: DRUG USE FOR UNKNOWN INDICATION
     Dosage: 50 MG/DAILY/PO
     Route: 048
     Dates: start: 20070501, end: 20070501
  2. THERAPY UNSPECIFIED [Concomitant]

REACTIONS (1)
  - BLOOD CREATINE INCREASED [None]
